FAERS Safety Report 4408291-8 (Version None)
Quarter: 2004Q3

REPORT INFORMATION
  Report Type: 
  Country: None (occurrence: None)
  Receive Date: 20040722
  Receipt Date: 20040705
  Transmission Date: 20050211
  Serious: Yes (Other)
  Sender: FDA-Public Use
  Company Number: PHBS2004IT09241

PATIENT
  Age: 49 Year
  Sex: Female

DRUGS (1)
  1. VISUDYNE [Suspect]
     Indication: CHOROIDAL NEOVASCULARISATION

REACTIONS (4)
  - CHOROIDAL NEOVASCULARISATION [None]
  - CHOROIDITIS [None]
  - DISEASE PROGRESSION [None]
  - VISUAL ACUITY REDUCED [None]
